FAERS Safety Report 5137568-6 (Version None)
Quarter: 2006Q4

REPORT INFORMATION
  Report Type: 
  Country: None (occurrence: None)
  Receive Date: 20061030
  Receipt Date: 20051121
  Transmission Date: 20070319
  Serious: No
  Sender: FDA-Public Use
  Company Number: US-GLAXOSMITHKLINE-A0583410A

PATIENT
  Age: 71 Year
  Sex: Male

DRUGS (9)
  1. ADVAIR HFA [Suspect]
     Indication: CHRONIC OBSTRUCTIVE PULMONARY DISEASE
     Dosage: 1PUFF VARIABLE DOSE
     Route: 055
  2. EFFEXOR [Concomitant]
  3. METOPROLOL TARTRATE [Concomitant]
  4. VYTORIN [Concomitant]
  5. ALLEGRA [Concomitant]
  6. CHLORDIAZEPOXIDE [Concomitant]
  7. ASPIRIN [Concomitant]
  8. DOXEPIN HCL [Concomitant]
  9. NASACORT [Concomitant]

REACTIONS (2)
  - CANDIDIASIS [None]
  - PHARMACEUTICAL PRODUCT COMPLAINT [None]
